FAERS Safety Report 5644866-6 (Version None)
Quarter: 2008Q1

REPORT INFORMATION
  Report Type: 
  Country: None (occurrence: None)
  Receive Date: 20080229
  Receipt Date: 20071121
  Transmission Date: 20080703
  Serious: No
  Sender: FDA-Public Use
  Company Number: A0683861A

PATIENT
  Age: 60 Year
  Sex: Male
  Weight: 94.5 kg

DRUGS (3)
  1. VALTREX [Suspect]
     Indication: HERPES ZOSTER
     Dosage: 1G THREE TIMES PER DAY
     Route: 048
     Dates: start: 20070917, end: 20070918
  2. LISINOPRIL AND HYDROCHLOROTHIAZIDE [Concomitant]
  3. ECOTRIN [Concomitant]

REACTIONS (4)
  - ADVERSE DRUG REACTION [None]
  - HEADACHE [None]
  - NAUSEA [None]
  - VOMITING [None]
